FAERS Safety Report 7608755-X (Version None)
Quarter: 2011Q3

REPORT INFORMATION
  Report Type: 
  Country: None (occurrence: None)
  Receive Date: 20110714
  Receipt Date: 20110714
  Transmission Date: 20111222
  Serious: Yes (Life-Threatening, Hospitalization, Other)
  Sender: FDA-Public Use
  Company Number: None

PATIENT
  Sex: Male

DRUGS (1)
  1. CIPROFLOXACIN [Suspect]
     Indication: INFECTION
     Dosage: 1 TABLET
     Route: 048
     Dates: start: 20110702, end: 20110703

REACTIONS (14)
  - MUSCULAR WEAKNESS [None]
  - TREMOR [None]
  - DIARRHOEA [None]
  - DIZZINESS [None]
  - FATIGUE [None]
  - SUICIDAL IDEATION [None]
  - NERVOUSNESS [None]
  - DEPRESSION [None]
  - ASTHENIA [None]
  - DECREASED APPETITE [None]
  - THIRST [None]
  - CONFUSIONAL STATE [None]
  - ANXIETY [None]
  - HICCUPS [None]
